FAERS Safety Report 15216726 (Version 1)
Quarter: 2018Q3

REPORT INFORMATION
  Report Type: Report from Study
  Country: US (occurrence: US)
  Receive Date: 20180730
  Receipt Date: 20180730
  Transmission Date: 20181010
  Serious: Yes (Hospitalization, Other)
  Sender: FDA-Public Use
  Company Number: US-GILEAD-2018-0352212

PATIENT
  Age: 80 Year
  Sex: Female

DRUGS (1)
  1. RANOLAZINE. [Suspect]
     Active Substance: RANOLAZINE
     Indication: ANGINA PECTORIS
     Dosage: 500 MG, BID
     Route: 048
     Dates: start: 2016

REACTIONS (3)
  - Cardiac failure [Unknown]
  - Blepharoplasty [Unknown]
  - Arrhythmia [Unknown]

NARRATIVE: CASE EVENT DATE: 201805
